FAERS Safety Report 9140689 (Version 3)
Quarter: 2013Q2

REPORT INFORMATION
  Report Type: Spontaneous
  Country: JP (occurrence: JP)
  Receive Date: 20130305
  Receipt Date: 20130621
  Transmission Date: 20140414
  Serious: Yes (Death, Hospitalization)
  Sender: FDA-Public Use
  Company Number: JP-ABBOTT-12P-087-1008764-00

PATIENT
  Age: 69 Year
  Sex: Female
  Weight: 55 kg

DRUGS (13)
  1. HUMIRA [Suspect]
     Indication: PSORIATIC ARTHROPATHY
     Route: 058
     Dates: start: 20110616, end: 20110616
  2. HUMIRA [Suspect]
     Indication: PSORIATIC ARTHROPATHY
     Route: 058
  3. ISONIAZID [Concomitant]
     Indication: ANTIBIOTIC PROPHYLAXIS
     Route: 048
     Dates: start: 20101020, end: 20120326
  4. SODIUM VALPROATE [Concomitant]
     Indication: EPILEPSY
     Route: 048
  5. SALAZOSULFAPYRIDINE [Concomitant]
     Indication: PSORIATIC ARTHROPATHY
     Route: 048
  6. EPINASTINE HYDROCHLORIDE [Concomitant]
     Indication: PRURITUS
     Route: 048
     Dates: start: 20101206
  7. ALLOPURINOL [Concomitant]
     Indication: HYPERURICAEMIA
     Route: 048
     Dates: start: 201203
  8. BROTIZOLAM [Concomitant]
     Indication: INSOMNIA
     Route: 048
  9. LEVOTHYROXINE SODIUM HYDRATE [Concomitant]
     Indication: HYPOTHYROIDISM
     Route: 048
  10. BETAMETHASONE BUTYRATE PROPIONATE [Concomitant]
     Indication: RASH
     Dosage: 5-10 G, 1-2 TIMES PER DAY
     Route: 061
     Dates: start: 20101101
  11. MAXACALCITOL [Concomitant]
     Indication: RASH
     Dosage: 0 - 1 G, 1-2 TIMES PER DAY
     Route: 061
     Dates: start: 20101020
  12. MAXACALCITOL [Concomitant]
     Dosage: 0 - 5 G, 1-2 TIMES PER DAY
     Route: 061
     Dates: start: 20101126
  13. HEPARINOID [Concomitant]
     Indication: RASH
     Dosage: 0 - 5 G, 1-2 TIMES PER DAY
     Route: 061
     Dates: start: 20101101

REACTIONS (4)
  - Abdominal pain [Fatal]
  - Dyspnoea [Fatal]
  - Pneumonia [Recovered/Resolved]
  - Cellulitis [Recovered/Resolved]
